FAERS Safety Report 8015715-6 (Version None)
Quarter: 2011Q4

REPORT INFORMATION
  Report Type: 
  Country: None (occurrence: None)
  Receive Date: 20111230
  Receipt Date: 20111229
  Transmission Date: 20120403
  Serious: Yes (Death, Other)
  Sender: FDA-Public Use
  Company Number: US-PFIZER INC-2011309708

PATIENT
  Age: 39 Year
  Sex: Female

DRUGS (10)
  1. ETHANOL [Suspect]
     Route: 048
  2. FLUOXETINE [Suspect]
     Route: 048
  3. TRAMADOL HCL [Suspect]
     Route: 048
  4. ACETAMINOPHEN AND HYDROCODONE BITARTRATE [Suspect]
     Route: 048
  5. CHLORZOXAZONE [Suspect]
     Route: 048
  6. OMEPRAZOLE [Suspect]
     Route: 048
  7. BENZONATATE [Suspect]
     Route: 048
  8. IRON [Suspect]
     Dosage: UNK
     Route: 048
  9. VITAMIN D [Suspect]
     Route: 048
  10. GABAPENTIN [Suspect]
     Route: 048

REACTIONS (1)
  - COMPLETED SUICIDE [None]
